FAERS Safety Report 19925798 (Version 2)
Quarter: 2021Q4

REPORT INFORMATION
  Report Type: Spontaneous
  Country: US (occurrence: US)
  Receive Date: 20211007
  Receipt Date: 20211103
  Transmission Date: 20220304
  Serious: Yes (Hospitalization, Other)
  Sender: FDA-Public Use
  Company Number: US-MLMSERVICE-20210916-3111621-1

PATIENT
  Age: 7 Year
  Sex: Female

DRUGS (1)
  1. AMOXICILLIN [Suspect]
     Active Substance: AMOXICILLIN
     Indication: Pharyngitis
     Dosage: UNK
     Route: 048
     Dates: start: 20210213, end: 20210220

REACTIONS (3)
  - Rash pruritic [Recovered/Resolved]
  - Drug eruption [Recovered/Resolved]
  - Rash morbilliform [Recovered/Resolved]
